FAERS Safety Report 24606652 (Version 1)
Quarter: 2024Q4

REPORT INFORMATION
  Report Type: Spontaneous
  Country: CN (occurrence: CN)
  Receive Date: 20241112
  Receipt Date: 20241112
  Transmission Date: 20250114
  Serious: Yes (Disabling)
  Sender: JIANGSU HENGRUI MEDICINE CO., LTD.
  Company Number: CN-Jiangsu Hengrui Medicine Co., Ltd.-2164892

PATIENT
  Age: 61 Year
  Sex: Female

DRUGS (5)
  1. PACLITAXEL [Suspect]
     Active Substance: PACLITAXEL
     Indication: Lung neoplasm malignant
     Dates: start: 20241016, end: 20241016
  2. INCADRONATE DISODIUM [Suspect]
     Active Substance: INCADRONATE DISODIUM
     Dates: start: 20241016, end: 20241016
  3. PEMETREXED [Concomitant]
     Active Substance: PEMETREXED
     Dates: start: 20241017, end: 20241017
  4. SUGEMALIMAB [Suspect]
     Active Substance: SUGEMALIMAB
     Dates: start: 20241017, end: 20241017
  5. CISPLATIN [Suspect]
     Active Substance: CISPLATIN
     Dates: start: 20241017, end: 20241019

REACTIONS (2)
  - Hypocalcaemia [Recovering/Resolving]
  - Muscle twitching [Recovering/Resolving]

NARRATIVE: CASE EVENT DATE: 20241019
